FAERS Safety Report 17857967 (Version 1)
Quarter: 2020Q2

REPORT INFORMATION
  Report Type: Spontaneous
  Country: GB (occurrence: GB)
  Receive Date: 20200604
  Receipt Date: 20200604
  Transmission Date: 20200714
  Serious: Yes (Other)
  Sender: FDA-Public Use
  Company Number: GB-AUROBINDO-AUR-APL-2020-026641

PATIENT
  Age: 48 Year
  Sex: Female
  Weight: 94 kg

DRUGS (4)
  1. AMITRIPTYLINE HYDROCHLORIDE. [Concomitant]
     Active Substance: AMITRIPTYLINE HYDROCHLORIDE
     Indication: PRODUCT USED FOR UNKNOWN INDICATION
     Dosage: TAKE AT NIGHT
     Route: 065
     Dates: start: 20200102
  2. MIRTAZAPINE FILM-COATED TABLET [Suspect]
     Active Substance: MIRTAZAPINE
     Indication: PRODUCT USED FOR UNKNOWN INDICATION
     Route: 048
     Dates: start: 20200310, end: 20200407
  3. DIHYDROCODEINE [Concomitant]
     Active Substance: DIHYDROCODEINE
     Indication: PRODUCT USED FOR UNKNOWN INDICATION
     Dosage: TAKE AT NIGHT
     Route: 065
     Dates: start: 20190905
  4. EVOREL [Concomitant]
     Indication: PRODUCT USED FOR UNKNOWN INDICATION
     Dosage: APPLY PATCH, REMOVE OLD PATCH ...
     Route: 065
     Dates: start: 20190312

REACTIONS (5)
  - Breast tenderness [Unknown]
  - Breast swelling [Unknown]
  - Myalgia [Recovered/Resolved]
  - Breast pain [Recovered/Resolved]
  - Pain in extremity [Unknown]

NARRATIVE: CASE EVENT DATE: 20200312
